FAERS Safety Report 21409452 (Version 3)
Quarter: 2025Q2

REPORT INFORMATION
  Report Type: Report from Study
  Country: CA (occurrence: CA)
  Receive Date: 20221004
  Receipt Date: 20250530
  Transmission Date: 20250716
  Serious: Yes (Hospitalization, Other)
  Sender: ROCHE
  Company Number: CA-ROCHE-2935109

PATIENT
  Age: 86 Year
  Sex: Female

DRUGS (20)
  1. RITUXAN [Suspect]
     Active Substance: RITUXIMAB
     Indication: Rheumatoid arthritis
     Route: 042
     Dates: start: 20160826, end: 20181128
  2. ACTEMRA [Suspect]
     Active Substance: TOCILIZUMAB
     Indication: Rheumatoid arthritis
     Dosage: ON GOING
     Route: 058
     Dates: start: 202205
  3. ACTEMRA [Suspect]
     Active Substance: TOCILIZUMAB
     Indication: Giant cell arteritis
     Route: 065
  4. NITROFURANTOIN [Suspect]
     Active Substance: NITROFURANTOIN
     Indication: Product used for unknown indication
     Route: 065
  5. MODERNA COVID-19 VACCINE [Suspect]
     Active Substance: ELASOMERAN
     Indication: Product used for unknown indication
     Route: 065
  6. PREDNISONE [Suspect]
     Active Substance: PREDNISONE
     Indication: Product used for unknown indication
     Route: 065
  7. PREDNISONE [Suspect]
     Active Substance: PREDNISONE
     Route: 065
     Dates: start: 20211116
  8. ASPIRIN [Concomitant]
     Active Substance: ASPIRIN
  9. ACTONEL [Concomitant]
     Active Substance: RISEDRONATE SODIUM
     Dates: start: 2019
  10. ARTHROTEC [Concomitant]
     Active Substance: DICLOFENAC SODIUM\MISOPROSTOL
  11. CRESTOR [Concomitant]
     Active Substance: ROSUVASTATIN CALCIUM
  12. FELODIPINE [Concomitant]
     Active Substance: FELODIPINE
     Route: 048
  13. FOLIC ACID [Concomitant]
     Active Substance: FOLIC ACID
  14. GLUCOSAMINE [Concomitant]
     Active Substance: GLUCOSAMINE
  15. LYRICA [Concomitant]
     Active Substance: PREGABALIN
  16. PANTOPRAZOLE [Concomitant]
     Active Substance: PANTOPRAZOLE
  17. SENOKOT [Concomitant]
     Active Substance: SENNOSIDES
  18. SYNTHROID [Concomitant]
     Active Substance: LEVOTHYROXINE SODIUM
  19. TELMISARTAN [Concomitant]
     Active Substance: TELMISARTAN
     Route: 048
  20. VALSARTAN [Concomitant]
     Active Substance: VALSARTAN

REACTIONS (23)
  - Drug hypersensitivity [Unknown]
  - Fall [Unknown]
  - Occipital lobe stroke [Unknown]
  - Peripheral vascular disorder [Unknown]
  - Hip fracture [Recovering/Resolving]
  - Osteoarthritis [Unknown]
  - Cystitis [Recovering/Resolving]
  - Dyspnoea [Unknown]
  - Pericarditis [Unknown]
  - Cardiac failure [Unknown]
  - Cardiac failure congestive [Unknown]
  - Oedema peripheral [Unknown]
  - Hip arthroplasty [Unknown]
  - Drug ineffective [Unknown]
  - Joint swelling [Unknown]
  - Joint swelling [Unknown]
  - Urinary tract infection [Unknown]
  - Myocardial ischaemia [Unknown]
  - Pulmonary embolism [Unknown]
  - Osteoporosis [Unknown]
  - Pain [Unknown]
  - Productive cough [Unknown]
  - Spinal decompression [Unknown]

NARRATIVE: CASE EVENT DATE: 20220701
